FAERS Safety Report 8218945-3 (Version None)
Quarter: 2012Q1

REPORT INFORMATION
  Report Type: 
  Country: None (occurrence: None)
  Receive Date: 20120319
  Receipt Date: 20120313
  Transmission Date: 20120608
  Serious: Yes (Hospitalization)
  Sender: FDA-Public Use
  Company Number: GR-PFIZER INC-2012065700

PATIENT
  Age: 53 Year
  Sex: Female

DRUGS (3)
  1. METHYLPREDNISOLONE [Suspect]
     Indication: CROHN'S DISEASE
     Dosage: UNK
  2. METHOTREXATE SODIUM [Suspect]
     Indication: CROHN'S DISEASE
     Dosage: UNK
  3. AZATHIOPRINE [Suspect]
     Indication: CROHN'S DISEASE

REACTIONS (2)
  - EYELID OEDEMA [None]
  - EYELID DISORDER [None]
